FAERS Safety Report 5227717-3 (Version None)
Quarter: 2007Q1

REPORT INFORMATION
  Report Type: 
  Country: None (occurrence: None)
  Receive Date: 20070202
  Receipt Date: 20070122
  Transmission Date: 20070707
  Serious: Yes (Hospitalization, Disabling, Other)
  Sender: FDA-Public Use
  Company Number: US-PFIZER INC-2007006361

PATIENT
  Sex: Male
  Weight: 93 kg

DRUGS (2)
  1. CELEBREX [Suspect]
     Indication: MUSCULOSKELETAL PAIN
     Route: 048
  2. CELEBREX [Suspect]
     Indication: ARTHRITIS

REACTIONS (4)
  - CEREBROVASCULAR ACCIDENT [None]
  - DEAFNESS [None]
  - DEAFNESS UNILATERAL [None]
  - HEMIPARESIS [None]
